FAERS Safety Report 14812527 (Version 3)
Quarter: 2018Q2

REPORT INFORMATION
  Report Type: Report from Study
  Country: None (occurrence: FI)
  Receive Date: 20180425
  Receipt Date: 20180530
  Transmission Date: 20180711
  Serious: Yes (Hospitalization, Other)
  Sender: FDA-Public Use
  Company Number: FI-ABBVIE-18K-055-2328539-00

PATIENT
  Age: 79 Year
  Sex: Male

DRUGS (2)
  1. DUODOPA [Suspect]
     Active Substance: CARBIDOPA\LEVODOPA
     Route: 050
  2. DUODOPA [Suspect]
     Active Substance: CARBIDOPA\LEVODOPA
     Indication: PARKINSON^S DISEASE
     Dosage: MD 10 ML; CD 1.5 ML/H; ED 1 ML. 16H TREATMENT.
     Route: 050
     Dates: start: 2013

REACTIONS (6)
  - Dyskinesia [Unknown]
  - Hip fracture [Not Recovered/Not Resolved]
  - Device issue [Recovered/Resolved]
  - Fall [Recovering/Resolving]
  - Device dislocation [Not Recovered/Not Resolved]
  - Injury [Recovering/Resolving]

NARRATIVE: CASE EVENT DATE: 20180406
